FAERS Safety Report 5389082-0 (Version None)
Quarter: 2007Q3

REPORT INFORMATION
  Report Type: 
  Country: None (occurrence: None)
  Receive Date: 20070717
  Receipt Date: 20070710
  Transmission Date: 20080115
  Serious: Yes (Other)
  Sender: FDA-Public Use
  Company Number: CA-ELI_LILLY_AND_COMPANY-CA200707002735

PATIENT
  Sex: Female

DRUGS (5)
  1. ZYPREXA ZYDIS [Suspect]
     Dosage: 5 MG, UNK
     Route: 048
     Dates: start: 20070709
  2. HUMALOG [Suspect]
     Indication: DIABETES MELLITUS
     Dosage: UNK U, OTHER
     Route: 058
     Dates: start: 19810101
  3. LANTUS [Concomitant]
     Indication: DIABETES MELLITUS
     Dosage: 20 U, EACH EVENING
     Route: 058
     Dates: start: 20040101
  4. ESTROGEN NOS [Concomitant]
     Indication: HORMONE REPLACEMENT THERAPY
     Dosage: 0.3 MG, DAILY (1/D)
     Route: 048
     Dates: start: 20030101
  5. PROGESTERONE [Concomitant]
     Indication: HORMONE REPLACEMENT THERAPY
     Dosage: 2.5 MG, DAILY (1/D)
     Route: 048
     Dates: start: 20040101

REACTIONS (2)
  - NERVOUSNESS [None]
  - SHOCK HYPOGLYCAEMIC [None]
